FAERS Safety Report 4430419-4 (Version None)
Quarter: 2004Q3

REPORT INFORMATION
  Report Type: 
  Country: None (occurrence: None)
  Receive Date: 20040721
  Receipt Date: 20030829
  Transmission Date: 20050211
  Serious: Yes (Other)
  Sender: FDA-Public Use
  Company Number: WAES 0309USA00118

PATIENT
  Age: 86 Year
  Sex: Male
  Weight: 86.1834 kg

DRUGS (11)
  1. VIOXX [Suspect]
     Indication: OSTEOARTHRITIS
     Dosage: SEE IMAGE
     Route: 048
     Dates: start: 20010101, end: 20030804
  2. VIOXX [Suspect]
     Indication: OSTEOARTHRITIS
     Dosage: SEE IMAGE
     Route: 048
     Dates: start: 20010101, end: 20030804
  3. VIOXX [Suspect]
     Indication: OSTEOARTHRITIS
     Dosage: SEE IMAGE
     Route: 048
     Dates: start: 20010101, end: 20030804
  4. VIOXX [Suspect]
  5. VIOXX [Concomitant]
  6. ACCUPRIL [Concomitant]
  7. HYDRODIURIL [Concomitant]
  8. LANOXIN [Concomitant]
  9. ZOCOR [Concomitant]
  10. ATENOLOL [Concomitant]
  11. MINERALS (=) VITAMINK [Concomitant]

REACTIONS (1)
  - HYPERTENSIVE CRISIS [None]
